FAERS Safety Report 16452677 (Version 1)
Quarter: 2019Q2

REPORT INFORMATION
  Report Type: Spontaneous
  Country: US (occurrence: US)
  Receive Date: 20190619
  Receipt Date: 20190619
  Transmission Date: 20190711
  Serious: No
  Sender: FDA-Public Use
  Company Number: US-ROCHE-2191096

PATIENT
  Sex: Female

DRUGS (5)
  1. CIMZIA [Concomitant]
     Active Substance: CERTOLIZUMAB PEGOL
  2. ACTEMRA [Suspect]
     Active Substance: TOCILIZUMAB
     Indication: PRODUCT USED FOR UNKNOWN INDICATION
     Route: 065
  3. HUMIRA [Concomitant]
     Active Substance: ADALIMUMAB
  4. ENBREL [Concomitant]
     Active Substance: ETANERCEPT
  5. XELJANZ [Concomitant]
     Active Substance: TOFACITINIB CITRATE

REACTIONS (2)
  - No adverse event [Unknown]
  - Drug ineffective [Unknown]
